FAERS Safety Report 5243851-6 (Version None)
Quarter: 2007Q1

REPORT INFORMATION
  Report Type: 
  Country: None (occurrence: None)
  Receive Date: 20070215
  Receipt Date: 20070129
  Transmission Date: 20070707
  Serious: Yes (Hospitalization)
  Sender: FDA-Public Use
  Company Number: DSA_29303_2007

PATIENT
  Age: 67 Year
  Sex: Female

DRUGS (6)
  1. ENALAPRIL MALEATE [Suspect]
     Indication: VENTRICULAR DYSFUNCTION
     Dosage: DF, PO
     Route: 048
     Dates: end: 20070116
  2. FUROSEMIDE [Suspect]
     Indication: VENTRICULAR DYSFUNCTION
     Dosage: DF, PO
     Route: 048
     Dates: end: 20070116
  3. BISOPROLO FUMARATE [Concomitant]
  4. CLONAZEPAM [Concomitant]
  5. FLUINDIONE [Concomitant]
  6. MORPHINE [Concomitant]

REACTIONS (4)
  - DEHYDRATION [None]
  - DIARRHOEA [None]
  - HYPERKALAEMIA [None]
  - RENAL FAILURE ACUTE [None]
